FAERS Safety Report 5364738-4 (Version None)
Quarter: 2007Q2

REPORT INFORMATION
  Report Type: 
  Country: None (occurrence: None)
  Receive Date: 20070530
  Receipt Date: 20070116
  Transmission Date: 20071010
  Serious: No
  Sender: FDA-Public Use
  Company Number: 2006PV009020

PATIENT
  Age: 66 Year
  Sex: Male
  Weight: 145.151 kg

DRUGS (8)
  1. BYETTA [Suspect]
     Dosage: 10 MCG; BID; SC, 5 MCG; BID; SC, 5 MCG; BID; SC
     Route: 058
     Dates: start: 20051001, end: 20051101
  2. BYETTA [Suspect]
     Dosage: 10 MCG; BID; SC, 5 MCG; BID; SC, 5 MCG; BID; SC
     Route: 058
     Dates: start: 20060101, end: 20060101
  3. BYETTA [Suspect]
     Dosage: 10 MCG; BID; SC, 5 MCG; BID; SC, 5 MCG; BID; SC
     Route: 058
     Dates: start: 20060126
  4. BYETTA [Suspect]
  5. METFORMIN HCL [Concomitant]
  6. ACTOS [Concomitant]
  7. GLYBURIDE [Concomitant]
  8. LEVEMIR [Concomitant]

REACTIONS (1)
  - BLOOD GLUCOSE INCREASED [None]
